FAERS Safety Report 5775308-8 (Version None)
Quarter: 2008Q2

REPORT INFORMATION
  Report Type: 
  Country: None (occurrence: None)
  Receive Date: 20080616
  Receipt Date: 20080616
  Transmission Date: 20081010
  Serious: Yes (Other)
  Sender: FDA-Public Use
  Company Number: None

PATIENT
  Age: 58 Year
  Sex: Female
  Weight: 80.7403 kg

DRUGS (2)
  1. LYRICA [Suspect]
     Indication: FIBROMYALGIA
     Dosage: 1 TAB BID PO
     Route: 048
     Dates: start: 20080519, end: 20080530
  2. LYRICA [Suspect]
     Indication: FIBROMYALGIA
     Dosage: 1 TAB BID PO
     Route: 048
     Dates: start: 20080605, end: 20080611

REACTIONS (6)
  - BALANCE DISORDER [None]
  - DYSKINESIA [None]
  - GAIT DISTURBANCE [None]
  - NIGHTMARE [None]
  - PAIN [None]
  - THINKING ABNORMAL [None]
